FAERS Safety Report 7246049 (Version 3)
Quarter: 2020Q3

REPORT INFORMATION
  Report Type: Report from Study
  Country: US (occurrence: US)
  Receive Date: 20100114
  Receipt Date: 20110216
  Transmission Date: 20201104
  Serious: Yes (Hospitalization)
  Sender: FDA-Public Use
  Company Number: US-JNJFOC-20100101678

PATIENT
  Age: 33 Year
  Sex: Female
  Weight: 108.1 kg

DRUGS (3)
  1. ACETAMINOPHEN. [Concomitant]
     Active Substance: ACETAMINOPHEN
     Route: 048
  2. USTEKINUMAB [Suspect]
     Active Substance: USTEKINUMAB
     Route: 042
  3. USTEKINUMAB [Suspect]
     Active Substance: USTEKINUMAB
     Indication: CROHN^S DISEASE
     Route: 042

REACTIONS (11)
  - Hypokalaemia [None]
  - Deep vein thrombosis [None]
  - Device related sepsis [None]
  - Thrombocytopenia [None]
  - Staphylococcal sepsis [None]
  - Device related infection [Recovered/Resolved]
  - Diabetes mellitus [None]
  - Arthralgia [None]
  - Iron deficiency anaemia [None]
  - Normochromic normocytic anaemia [None]
  - Vitamin B12 deficiency [None]

NARRATIVE: CASE EVENT DATE: 20091231
